FAERS Safety Report 10267503 (Version 2)
Quarter: 2014Q3

REPORT INFORMATION
  Report Type: Spontaneous
  Country: BR (occurrence: BR)
  Receive Date: 20140630
  Receipt Date: 20140818
  Transmission Date: 20150326
  Serious: Yes (Other)
  Sender: FDA-Public Use
  Company Number: BR-SA-2014SA085786

PATIENT
  Sex: Male

DRUGS (1)
  1. FEXOFENADINE HYDROCHLORIDE/PSEUDOEPHEDRINE HYDROCHLORIDE [Suspect]
     Active Substance: FEXOFENADINE HYDROCHLORIDE\PSEUDOEPHEDRINE HYDROCHLORIDE
     Route: 065
     Dates: start: 20140619

REACTIONS (4)
  - Condition aggravated [Unknown]
  - Medication residue present [Unknown]
  - Drug ineffective [Unknown]
  - Respiratory disorder [Unknown]
